FAERS Safety Report 13934309 (Version 1)
Quarter: 2017Q3

REPORT INFORMATION
  Report Type: Report from Study
  Country: US (occurrence: US)
  Receive Date: 20170905
  Receipt Date: 20170905
  Transmission Date: 20171127
  Serious: No
  Sender: FDA-Public Use
  Company Number: PHEH2017US028381

PATIENT
  Age: 47 Year
  Sex: Female

DRUGS (1)
  1. GILENYA [Suspect]
     Active Substance: FINGOLIMOD HYDROCHLORIDE
     Indication: MULTIPLE SCLEROSIS
     Dosage: 0.5 MG, QD
     Route: 048
     Dates: start: 20170731

REACTIONS (5)
  - Dyspnoea [Unknown]
  - Gait disturbance [Unknown]
  - Anxiety [Unknown]
  - Cough [Unknown]
  - Throat irritation [Unknown]

NARRATIVE: CASE EVENT DATE: 20170801
